FAERS Safety Report 8057194-9 (Version None)
Quarter: 2012Q1

REPORT INFORMATION
  Report Type: 
  Country: None (occurrence: None)
  Receive Date: 20120119
  Receipt Date: 20120112
  Transmission Date: 20120608
  Serious: Yes (Other)
  Sender: FDA-Public Use
  Company Number: PHHY2011DE90884

PATIENT
  Sex: Male
  Weight: 95 kg

DRUGS (6)
  1. LYRICA [Concomitant]
     Dosage: 150 MG, QD
     Route: 048
     Dates: start: 20110623
  2. GILENYA [Suspect]
     Indication: MULTIPLE SCLEROSIS
     Dosage: 0.5 MG, DAILY
     Route: 048
     Dates: start: 20110721
  3. TILIDIN [Concomitant]
     Dosage: UNK UKN, UNK
     Dates: start: 20110610
  4. LYRICA [Concomitant]
     Indication: PARAESTHESIA
     Dosage: 75 MG, QD
     Route: 048
     Dates: start: 20110616
  5. VITAMIN B-12 [Concomitant]
     Dosage: 250 UKN, UNK
     Dates: start: 20110706
  6. DEKRISTOL [Concomitant]
     Dosage: 1 DF, QW
     Dates: start: 20110301

REACTIONS (1)
  - HELICOBACTER GASTRITIS [None]
